FAERS Safety Report 15565487 (Version 1)
Quarter: 2018Q4

REPORT INFORMATION
  Report Type: Spontaneous
  Country: BR (occurrence: BR)
  Receive Date: 20181030
  Receipt Date: 20181030
  Transmission Date: 20190205
  Serious: Yes (Other)
  Sender: FDA-Public Use
  Company Number: PHHY2018BR139422

PATIENT
  Sex: Female

DRUGS (1)
  1. ACLASTA [Suspect]
     Active Substance: ZOLEDRONIC ACID
     Indication: PRODUCT USED FOR UNKNOWN INDICATION
     Route: 065

REACTIONS (21)
  - Abscess limb [Unknown]
  - Neck pain [Unknown]
  - Mobility decreased [Unknown]
  - Spinal fracture [Unknown]
  - Nephrolithiasis [Unknown]
  - Headache [Unknown]
  - Chills [Unknown]
  - Laryngeal pain [Unknown]
  - Poor venous access [Unknown]
  - Myalgia [Unknown]
  - Pain [Unknown]
  - Pyrexia [Unknown]
  - Asthenia [Unknown]
  - Feeling abnormal [Unknown]
  - Somnolence [Unknown]
  - Malaise [Unknown]
  - Application site bruise [Unknown]
  - Abdominal pain upper [Unknown]
  - Gait disturbance [Unknown]
  - Arthralgia [Unknown]
  - Nausea [Unknown]
